FAERS Safety Report 16767211 (Version 1)
Quarter: 2019Q4

REPORT INFORMATION
  Report Type: Spontaneous
  Country: US (occurrence: US)
  Receive Date: 20190902
  Receipt Date: 20190902
  Transmission Date: 20200122
  Serious: No
  Sender: FDA-Public Use
  Company Number: None

PATIENT
  Age: 51 Year
  Sex: Female

DRUGS (1)
  1. RHOFADE [Suspect]
     Active Substance: OXYMETAZOLINE HYDROCHLORIDE
     Indication: ROSACEA
     Route: 061
     Dates: start: 20190830, end: 20190901

REACTIONS (3)
  - Application site pain [None]
  - Application site pruritus [None]
  - Application site acne [None]

NARRATIVE: CASE EVENT DATE: 20190830
